FAERS Safety Report 6934841-3 (Version None)
Quarter: 2010Q3

REPORT INFORMATION
  Report Type: 
  Country: None (occurrence: None)
  Receive Date: 20100820
  Receipt Date: 20100806
  Transmission Date: 20110219
  Serious: Yes (Other)
  Sender: FDA-Public Use
  Company Number: PHHY2008CA15129

PATIENT
  Sex: Female

DRUGS (5)
  1. ZOLEDRONIC [Suspect]
     Indication: OSTEOPOROSIS
     Dosage: 5 MG, UNK
     Dates: start: 20080718
  2. SYNTHROID [Concomitant]
  3. CALCIUM [Concomitant]
  4. VITAMIN D [Concomitant]
  5. REMERON [Concomitant]

REACTIONS (6)
  - BONE DENSITY DECREASED [None]
  - DRUG INEFFECTIVE [None]
  - FOOT FRACTURE [None]
  - PAIN IN JAW [None]
  - TOOTH DISORDER [None]
  - TRISMUS [None]
